FAERS Safety Report 26051514 (Version 1)
Quarter: 2025Q4

REPORT INFORMATION
  Report Type: Report from Study
  Country: US (occurrence: US)
  Receive Date: 20251117
  Receipt Date: 20251117
  Transmission Date: 20260118
  Serious: Yes (Other)
  Sender: ABBVIE
  Company Number: US-ABBVIE-6549125

PATIENT
  Age: 69 Year
  Sex: Female

DRUGS (1)
  1. HUMIRA [Suspect]
     Active Substance: ADALIMUMAB
     Indication: Product used for unknown indication
     Route: 058
     Dates: start: 20181113

REACTIONS (7)
  - Fluid retention [Unknown]
  - Spinal operation [Unknown]
  - Medical device implantation [Unknown]
  - Pruritus [Unknown]
  - Nerve compression [Unknown]
  - Elbow operation [Unknown]
  - Fall [Unknown]

NARRATIVE: CASE EVENT DATE: 20240601
